FAERS Safety Report 6893049-0 (Version None)
Quarter: 2010Q3

REPORT INFORMATION
  Report Type: 
  Country: None (occurrence: None)
  Receive Date: 20100731
  Receipt Date: 20090220
  Transmission Date: 20110219
  Serious: No
  Sender: FDA-Public Use
  Company Number: US-PFIZER INC-2008017884

PATIENT
  Sex: Female
  Weight: 95.7 kg

DRUGS (2)
  1. NORVASC [Suspect]
     Indication: HYPERTENSION
  2. MAXZIDE [Concomitant]

REACTIONS (5)
  - FEELING ABNORMAL [None]
  - NASOPHARYNGITIS [None]
  - OEDEMA PERIPHERAL [None]
  - SINUSITIS [None]
  - SKIN DISCOLOURATION [None]
